FAERS Safety Report 7568547-7 (Version None)
Quarter: 2011Q2

REPORT INFORMATION
  Report Type: 
  Country: None (occurrence: None)
  Receive Date: 20110623
  Receipt Date: 20110614
  Transmission Date: 20111010
  Serious: Yes (Hospitalization)
  Sender: FDA-Public Use
  Company Number: GB-TEVA-286499ISR

PATIENT
  Sex: Male

DRUGS (2)
  1. RAMIPRIL [Suspect]
     Dosage: 2.5 MILLIGRAM;
     Route: 048
     Dates: start: 20110101
  2. RAMIPRIL [Suspect]
     Indication: HYPERTENSION
     Dosage: 5 MILLIGRAM;
     Route: 048
     Dates: start: 20110324, end: 20110418

REACTIONS (3)
  - DIABETES MELLITUS [None]
  - DYSPHONIA [None]
  - COUGH [None]
